FAERS Safety Report 12893124 (Version 1)
Quarter: 2016Q4

REPORT INFORMATION
  Report Type: Spontaneous
  Country: FR (occurrence: FR)
  Receive Date: 20161028
  Receipt Date: 20161028
  Transmission Date: 20170207
  Serious: Yes (Hospitalization)
  Sender: FDA-Public Use
  Company Number: FR-PFIZER INC-2016493027

PATIENT
  Age: 76 Year
  Sex: Female

DRUGS (11)
  1. ESIDREX [Suspect]
     Active Substance: HYDROCHLOROTHIAZIDE
     Dosage: 25 MG, DAILY
     Route: 048
     Dates: start: 20160612, end: 20160620
  2. AMLODIPINE [Concomitant]
     Active Substance: AMLODIPINE BESYLATE
     Dosage: 10 MG, DAILY
  3. SIMVASTATIN. [Concomitant]
     Active Substance: SIMVASTATIN
     Dosage: 10 MG, DAILY
  4. ESCITALOPRAM ARROW [Suspect]
     Active Substance: ESCITALOPRAM OXALATE
     Dosage: 20 MG, DAILY
     Route: 048
     Dates: end: 20160623
  5. CEFTRIAXONE PANPHARMA [Suspect]
     Active Substance: CEFTRIAXONE
     Indication: ENDOCARDITIS
     Dosage: 1 G, DAILY
     Route: 042
     Dates: start: 20160523
  6. OXAZEPAM. [Concomitant]
     Active Substance: OXAZEPAM
     Dosage: 10 MG, 3X/DAY
  7. FRAGMINE [Suspect]
     Active Substance: DALTEPARIN SODIUM
     Dosage: 5000 IU, DAILY
     Route: 058
     Dates: start: 20160608, end: 20160623
  8. PARACETAMOL [Concomitant]
     Active Substance: ACETAMINOPHEN
     Dosage: UNK UNK, AS NEEDED
  9. PHLOROGLUCINOL [Concomitant]
     Active Substance: PHLOROGLUCINOL
  10. CEFTRIAXONE PANPHARMA [Suspect]
     Active Substance: CEFTRIAXONE
     Dosage: 2 G, DAILY
     Route: 042
     Dates: start: 20160527, end: 20160621
  11. ESIDREX [Suspect]
     Active Substance: HYDROCHLOROTHIAZIDE
     Indication: HYPERTENSION
     Dosage: 12.5 MG, DAILY
     Route: 048
     Dates: start: 20160608

REACTIONS (1)
  - Agranulocytosis [Recovered/Resolved]

NARRATIVE: CASE EVENT DATE: 20160621
